FAERS Safety Report 8567769-6 (Version None)
Quarter: 2012Q3

REPORT INFORMATION
  Report Type: 
  Country: None (occurrence: None)
  Receive Date: 20120803
  Receipt Date: 20120801
  Transmission Date: 20120928
  Serious: No
  Sender: FDA-Public Use
  Company Number: US-TEVA-350403USA

PATIENT
  Sex: Female
  Weight: 81.72 kg

DRUGS (2)
  1. PLAN B ONE-STEP [Suspect]
     Indication: POST COITAL CONTRACEPTION
     Dosage: 1.5 MILLIGRAM;
     Route: 048
     Dates: start: 20120705, end: 20120705
  2. PLAN B ONE-STEP [Suspect]
     Dosage: 1.5 MILLIGRAM;
     Route: 048
     Dates: start: 20120711, end: 20120711

REACTIONS (6)
  - HEADACHE [None]
  - BREAST TENDERNESS [None]
  - BREAST ENLARGEMENT [None]
  - ABDOMINAL RIGIDITY [None]
  - MENSTRUATION IRREGULAR [None]
  - FATIGUE [None]
